FAERS Safety Report 20263242 (Version 6)
Quarter: 2023Q4

REPORT INFORMATION
  Report Type: Report from Study
  Country: CA (occurrence: CA)
  Receive Date: 20211231
  Receipt Date: 20231101
  Transmission Date: 20240110
  Serious: Yes (Other)
  Sender: FDA-Public Use
  Company Number: CA-JNJFOC-20211249397

PATIENT
  Age: 63 Year
  Sex: Female

DRUGS (9)
  1. SELEXIPAG [Suspect]
     Active Substance: SELEXIPAG
     Indication: Pulmonary hypertension
     Route: 048
     Dates: start: 20211103
  2. SELEXIPAG [Suspect]
     Active Substance: SELEXIPAG
     Route: 048
     Dates: start: 20211103
  3. SELEXIPAG [Suspect]
     Active Substance: SELEXIPAG
     Route: 048
  4. SELEXIPAG [Suspect]
     Active Substance: SELEXIPAG
     Route: 048
  5. MACITENTAN [Suspect]
     Active Substance: MACITENTAN
     Indication: Pulmonary hypertension
     Route: 048
     Dates: start: 20210325
  6. ADCIRCA [Concomitant]
     Active Substance: TADALAFIL
  7. FUROSEMIDE [Concomitant]
     Active Substance: FUROSEMIDE
  8. VITAMIN K [Concomitant]
     Active Substance: PHYTONADIONE
  9. ERGOCALCIFEROL [Concomitant]
     Active Substance: ERGOCALCIFEROL

REACTIONS (4)
  - Hypotension [Recovering/Resolving]
  - Fatigue [Not Recovered/Not Resolved]
  - Somnolence [Recovering/Resolving]
  - Therapy change [Unknown]
